FAERS Safety Report 11534207 (Version 1)
Quarter: 2015Q3

REPORT INFORMATION
  Report Type: Spontaneous
  Country: US (occurrence: US)
  Receive Date: 20150922
  Receipt Date: 20150922
  Transmission Date: 20151125
  Serious: No
  Sender: FDA-Public Use
  Company Number: US-ACCORD-033560

PATIENT
  Sex: Female

DRUGS (3)
  1. AMITRIPTYLINE ACCORD [Suspect]
     Active Substance: AMITRIPTYLINE
     Indication: NEUROPATHY PERIPHERAL
     Route: 048
     Dates: start: 20141105, end: 20141222
  2. FENTANYL. [Concomitant]
     Active Substance: FENTANYL
     Dosage: PATCH
  3. GABAPENTIN. [Suspect]
     Active Substance: GABAPENTIN
     Indication: NEUROPATHY PERIPHERAL
     Route: 048
     Dates: start: 20140422, end: 20140520

REACTIONS (5)
  - Off label use [Unknown]
  - Hypoaesthesia [Unknown]
  - Drug ineffective [Unknown]
  - Paraesthesia [Unknown]
  - Peripheral swelling [Unknown]
